FAERS Safety Report 4951601-3 (Version None)
Quarter: 2006Q1

REPORT INFORMATION
  Report Type: 
  Country: None (occurrence: None)
  Receive Date: 20060323
  Receipt Date: 20060314
  Transmission Date: 20060701
  Serious: Yes (Hospitalization)
  Sender: FDA-Public Use
  Company Number: 2006CG00486

PATIENT
  Age: 76 Year
  Sex: Female

DRUGS (9)
  1. ARIMIDEX [Suspect]
     Indication: BREAST CANCER METASTATIC
     Route: 048
     Dates: start: 20020501, end: 20030801
  2. NOLVADEX [Suspect]
     Indication: BREAST CANCER METASTATIC
     Route: 048
     Dates: start: 20031001, end: 20040901
  3. AROMASINE [Suspect]
     Indication: BREAST CANCER METASTATIC
     Route: 048
     Dates: start: 20030801, end: 20031001
  4. LYTOS [Suspect]
     Route: 048
     Dates: start: 20020501, end: 20030801
  5. XELODA [Suspect]
     Indication: BREAST CANCER METASTATIC
     Route: 048
     Dates: start: 20050105, end: 20050927
  6. EPREX [Suspect]
     Route: 042
     Dates: start: 20050405, end: 20050927
  7. RADIOTHERAPY TO BREAST [Concomitant]
     Indication: BREAST CANCER METASTATIC
     Dosage: TOTAL DOSE: 50 GRAYS
     Dates: start: 20020806, end: 20020909
  8. RADIOTHERAPY TO BREAST [Concomitant]
     Dosage: TOTAL DOSE: 10 GRAYS
     Dates: start: 20020930, end: 20021004
  9. RADIOTHERAPY TO FEMUR [Concomitant]
     Indication: BREAST CANCER METASTATIC
     Dosage: TOTAL DOSE: 20 GRAYS
     Dates: start: 20020605, end: 20020613

REACTIONS (1)
  - ACUTE MYELOID LEUKAEMIA [None]
